FAERS Safety Report 13774802 (Version 1)
Quarter: 2017Q3

REPORT INFORMATION
  Report Type: Spontaneous
  Country: None (occurrence: US)
  Receive Date: 20170720
  Receipt Date: 20170720
  Transmission Date: 20171127
  Serious: No
  Sender: FDA-Public Use
  Company Number: None

PATIENT
  Age: 47 Year
  Sex: Female

DRUGS (1)
  1. SOVALDI [Suspect]
     Active Substance: SOFOSBUVIR
     Indication: HEPATITIS C
     Route: 048
     Dates: start: 20170712

REACTIONS (5)
  - Back pain [None]
  - Chromaturia [None]
  - Menorrhagia [None]
  - Drug dose omission [None]
  - Abdominal pain upper [None]

NARRATIVE: CASE EVENT DATE: 20170712
